FAERS Safety Report 8516076-6 (Version None)
Quarter: 2012Q3

REPORT INFORMATION
  Report Type: 
  Country: None (occurrence: None)
  Receive Date: 20120717
  Receipt Date: 20120712
  Transmission Date: 20120928
  Serious: Yes (Life-Threatening, Hospitalization, Congenital Anomaly, Other)
  Sender: FDA-Public Use
  Company Number: US-PFIZER INC-2011159707

PATIENT
  Sex: Female
  Weight: 4 kg

DRUGS (3)
  1. PERCOCET [Concomitant]
     Dosage: UNK
     Route: 064
  2. ZOLOFT [Suspect]
     Indication: DEPRESSION
     Dosage: 100 MG, 1X/DAY
     Route: 064
     Dates: start: 20050613
  3. SERTRALINE HYDROCHLORIDE [Suspect]
     Indication: DEPRESSION
     Dosage: 100 MG, 1X/DAY
     Route: 064
     Dates: start: 20060101

REACTIONS (15)
  - VESICOURETERIC REFLUX [None]
  - PATENT DUCTUS ARTERIOSUS [None]
  - CONUS MEDULLARIS SYNDROME [None]
  - TRICUSPID VALVE INCOMPETENCE [None]
  - MATERNAL EXPOSURE TIMING UNSPECIFIED [None]
  - VACTERL SYNDROME [None]
  - AORTIC VALVE INCOMPETENCE [None]
  - MITRAL VALVE INCOMPETENCE [None]
  - CAUDAL REGRESSION SYNDROME [None]
  - SYRINGOMYELIA [None]
  - SPINA BIFIDA OCCULTA [None]
  - CONGENITAL ANOMALY [None]
  - PERSISTENT CLOACA [None]
  - ANAL ATRESIA [None]
  - FEMALE GENITAL TRACT FISTULA [None]
